FAERS Safety Report 9423378 (Version 1)
Quarter: 2013Q3

REPORT INFORMATION
  Report Type: Spontaneous
  Country: US (occurrence: US)
  Receive Date: 20130726
  Receipt Date: 20130726
  Transmission Date: 20140515
  Serious: Yes (Hospitalization, Other)
  Sender: FDA-Public Use
  Company Number: US-ABBOTT-13P-163-1122946-00

PATIENT
  Age: 74 Year
  Sex: Male
  Weight: 86.26 kg

DRUGS (13)
  1. ANDROGEL [Suspect]
     Indication: BLOOD TESTOSTERONE DECREASED
     Route: 061
     Dates: start: 2005, end: 201212
  2. ANDROGEL [Suspect]
     Indication: BLOOD TESTOSTERONE DECREASED
     Route: 061
     Dates: start: 201212, end: 201304
  3. ANDROGEL [Suspect]
     Route: 061
     Dates: start: 201304
  4. HYDROCHLOROTHIAZIDE [Concomitant]
     Indication: HYPERTENSION
  5. RAMIPRIL [Concomitant]
     Indication: HYPERTENSION
  6. SIMVASTATIN [Concomitant]
     Indication: BLOOD CHOLESTEROL INCREASED
  7. METFORMIN [Concomitant]
     Indication: DIABETES MELLITUS
  8. ASPIRIN [Concomitant]
     Indication: CARDIOVASCULAR EVENT PROPHYLAXIS
  9. LORATADINE [Concomitant]
     Indication: HYPERSENSITIVITY
  10. ZOLPIDEM [Concomitant]
     Indication: INSOMNIA
  11. ATENOLOL [Concomitant]
     Indication: HYPERTENSION
  12. MULTIVITAMIN [Concomitant]
     Indication: VITAMIN SUPPLEMENTATION
  13. VITAMIN D NOS [Concomitant]
     Indication: VITAMIN SUPPLEMENTATION

REACTIONS (4)
  - Coronary artery occlusion [Recovered/Resolved]
  - Blood testosterone decreased [Unknown]
  - Blood testosterone decreased [Not Recovered/Not Resolved]
  - Drug prescribing error [Unknown]
